FAERS Safety Report 21206039 (Version 1)
Quarter: 2022Q3

REPORT INFORMATION
  Report Type: Spontaneous
  Country: US (occurrence: US)
  Receive Date: 20220812
  Receipt Date: 20220812
  Transmission Date: 20221026
  Serious: Yes (Other)
  Sender: FDA-Public Use
  Company Number: US-SA-SAC20220810002161

PATIENT
  Age: 62 Year
  Sex: Male

DRUGS (1)
  1. ZANTAC [Suspect]
     Active Substance: RANITIDINE HYDROCHLORIDE
     Indication: Gastrooesophageal reflux disease
     Dosage: 75 MG, TABLETS AND CAPSULES, SIX TIMES A DAY
     Route: 065
     Dates: start: 1995, end: 2016

REACTIONS (1)
  - Prostate cancer [Unknown]

NARRATIVE: CASE EVENT DATE: 20170926
